FAERS Safety Report 7029333-X (Version None)
Quarter: 2010Q4

REPORT INFORMATION
  Report Type: 
  Country: None (occurrence: None)
  Receive Date: 20101005
  Receipt Date: 20100923
  Transmission Date: 20110411
  Serious: Yes (Other)
  Sender: FDA-Public Use
  Company Number: PHHY2010DE65096

PATIENT
  Sex: Female

DRUGS (5)
  1. FORAIR [Suspect]
     Indication: ASTHMA
     Dosage: 12 UG, BID
     Dates: start: 20100922, end: 20100922
  2. VENTOLAIR [Concomitant]
     Dosage: UNK
  3. IRBESARTAN [Concomitant]
     Dosage: 75 MG
  4. LEVOTHYROXINE SODIUM [Concomitant]
  5. CALCIUM W/MAGNESIUM [Concomitant]

REACTIONS (2)
  - CARDIOVASCULAR DISORDER [None]
  - RASH [None]
